FAERS Safety Report 20569375 (Version 2)
Quarter: 2022Q2

REPORT INFORMATION
  Report Type: Report from Study
  Country: CA (occurrence: CA)
  Receive Date: 20220308
  Receipt Date: 20220404
  Transmission Date: 20220721
  Serious: Yes (Death, Other)
  Sender: FDA-Public Use
  Company Number: CA-ABBVIE-22K-028-4307668-00

PATIENT
  Age: 70 Year
  Sex: Male

DRUGS (1)
  1. LUPRON DEPOT [Suspect]
     Active Substance: LEUPROLIDE ACETATE
     Indication: Prostate cancer
     Route: 030
     Dates: start: 20170110

REACTIONS (4)
  - Haemorrhage intracranial [Fatal]
  - Cerebral mass effect [Unknown]
  - Cerebral ventricle dilatation [Unknown]
  - Vasogenic cerebral oedema [Unknown]

NARRATIVE: CASE EVENT DATE: 20220303
